FAERS Safety Report 4565232-0 (Version None)
Quarter: 2005Q1

REPORT INFORMATION
  Report Type: 
  Country: None (occurrence: None)
  Receive Date: 20050131
  Receipt Date: 20050120
  Transmission Date: 20050727
  Serious: Yes (Other)
  Sender: FDA-Public Use
  Company Number: US-GLAXOSMITHKLINE-A0541501A

PATIENT
  Age: 47 Year
  Sex: Female

DRUGS (4)
  1. CONTAC DAY + NIGHT COLD/FLU CAPLETS [Suspect]
     Route: 048
     Dates: start: 19960101
  2. DIPHENHYDRAMINE HCL [Concomitant]
     Route: 048
  3. ESTROVEN [Concomitant]
     Indication: MENOPAUSAL SYMPTOMS
     Route: 048
  4. PREMPRO [Concomitant]
     Indication: MENOPAUSAL SYMPTOMS

REACTIONS (3)
  - CARDIAC FAILURE CONGESTIVE [None]
  - PULMONARY OEDEMA [None]
  - SPEECH DISORDER [None]
